FAERS Safety Report 9522532 (Version 1)
Quarter: 2013Q1

REPORT INFORMATION
  Report Type: Spontaneous
  Country: US (occurrence: None)
  Receive Date: 20130305
  Receipt Date: 20130305
  Transmission Date: 20140127
  Serious: Yes (Other)
  Sender: FDA-Public Use
  Company Number: 163-21880-12063709

PATIENT
  Age: 63 Year
  Sex: Male
  Weight: 68.04 kg

DRUGS (2)
  1. REVLIMID [Suspect]
     Indication: PLASMA CELL MYELOMA
     Dosage: 25 MG, 21 IN 28 D, PO
     Route: 048
     Dates: start: 201203
  2. WHOLE BLOOD [Concomitant]

REACTIONS (8)
  - Myocardial infarction [None]
  - Platelet count decreased [None]
  - Contusion [None]
  - Hypoaesthesia [None]
  - Decreased appetite [None]
  - Fatigue [None]
  - Nasal congestion [None]
  - Rash [None]
